FAERS Safety Report 6171098-8 (Version None)
Quarter: 2009Q2

REPORT INFORMATION
  Report Type: 
  Country: None (occurrence: None)
  Receive Date: 20090429
  Receipt Date: 20090422
  Transmission Date: 20091009
  Serious: Yes (Other)
  Sender: FDA-Public Use
  Company Number: PHHY2009MX15692

PATIENT
  Age: 73 Year
  Sex: Male

DRUGS (6)
  1. EXFORGE [Suspect]
     Indication: HYPERTENSION
     Dosage: 1 DF, QD
  2. SELOKEN [Concomitant]
  3. PAXIL [Concomitant]
  4. LASIX [Concomitant]
  5. JANUVIA [Concomitant]
  6. LIPITOR [Concomitant]

REACTIONS (2)
  - ARTERIAL CATHETERISATION [None]
  - MYOCARDIAL INFARCTION [None]
